FAERS Safety Report 6723764-0 (Version None)
Quarter: 2010Q2

REPORT INFORMATION
  Report Type: 
  Country: None (occurrence: None)
  Receive Date: 20100513
  Receipt Date: 20100305
  Transmission Date: 20101027
  Serious: Yes (Other)
  Sender: FDA-Public Use
  Company Number: US-ROCHE-670545

PATIENT
  Age: 48 Year
  Sex: Male

DRUGS (18)
  1. MYCOPHENOLATE MOFETIL [Suspect]
     Dosage: MAINTENANCE IMMUNOSUPPRESSION
     Route: 065
  2. CYCLOSPORINE [Suspect]
     Dosage: TARGET SERUM TROUGH LEVELS OF 200 NG/ML; MAINTENANCE IMMUNOSUPPRESSION
     Route: 065
  3. CYCLOSPORINE [Suspect]
     Dosage: REDUCED
     Route: 065
  4. PRAVASTATIN [Suspect]
     Route: 065
  5. PRAVASTATIN [Suspect]
     Dosage: DOSAGE INCREASED TO 20 MG OVER THE NEXT TWO MONTHS.
     Route: 065
  6. FENOFIBRATE [Suspect]
     Route: 065
  7. EZETIMIBE [Suspect]
     Route: 065
  8. SIROLIMUS [Suspect]
     Route: 065
  9. SIROLIMUS [Suspect]
     Dosage: THERAPEUTIC LEVELS OF 5-10 MG/100ML NOT ACHIEVED UNTIL DOSE REDUCED TO 1 MG/WEEK
     Route: 065
  10. LOPINAVIR [Suspect]
     Route: 065
  11. ATAZANAVIR [Suspect]
     Route: 065
  12. FLUVASTATIN [Suspect]
     Route: 065
  13. COLESEVELAM [Suspect]
     Route: 065
  14. LAMIVUDINE [Suspect]
     Route: 065
  15. ABACAVIR [Suspect]
     Route: 065
  16. EFAVIRENZ [Suspect]
     Route: 065
  17. PREDNISONE TAB [Suspect]
     Route: 065
  18. RITONAVIR [Suspect]
     Route: 065

REACTIONS (3)
  - CHRONIC ALLOGRAFT NEPHROPATHY [None]
  - LIPIDS ABNORMAL [None]
  - NEPHROPATHY TOXIC [None]
